FAERS Safety Report 17526377 (Version 8)
Quarter: 2020Q2

REPORT INFORMATION
  Report Type: Spontaneous
  Country: US (occurrence: US)
  Receive Date: 20200311
  Receipt Date: 20200617
  Transmission Date: 20200713
  Serious: Yes (Hospitalization, Other)
  Sender: FDA-Public Use
  Company Number: US-PFIZER INC-2020100528

PATIENT
  Age: 75 Year
  Sex: Female
  Weight: 35.18 kg

DRUGS (4)
  1. SYNTHROID [Concomitant]
     Active Substance: LEVOTHYROXINE SODIUM
     Indication: THYROID DISORDER
     Dosage: 75 UG, 1X/DAY
     Route: 048
  2. GENOTROPIN [Suspect]
     Active Substance: SOMATROPIN
     Indication: HYPOTHALAMO-PITUITARY DISORDER
     Dosage: 0.3 MG, 1X/DAY
     Route: 058
     Dates: start: 2019
  3. GENOTROPIN [Suspect]
     Active Substance: SOMATROPIN
     Dosage: 3 MG, 1X/DAY
     Route: 058
     Dates: start: 2019
  4. GENOTROPIN [Suspect]
     Active Substance: SOMATROPIN
     Dosage: 0.3 MG, 1X/DAY
     Route: 058
     Dates: start: 20200320

REACTIONS (4)
  - Fatigue [Unknown]
  - Gastric ulcer haemorrhage [Recovering/Resolving]
  - Product dose omission [Unknown]
  - Device breakage [Unknown]

NARRATIVE: CASE EVENT DATE: 201912
